FAERS Safety Report 9643285 (Version 4)
Quarter: 2013Q4

REPORT INFORMATION
  Report Type: Spontaneous
  Country: JP (occurrence: JP)
  Receive Date: 20131024
  Receipt Date: 20131113
  Transmission Date: 20140711
  Serious: Yes (Hospitalization)
  Sender: FDA-Public Use
  Company Number: JP-AMGEN-JPNSP2013070734

PATIENT
  Age: 41 Year
  Sex: Female
  Weight: 60 kg

DRUGS (20)
  1. PRALIA [Suspect]
     Indication: OSTEOPOROSIS
     Dosage: 60 MG, QD
     Route: 058
     Dates: start: 20130925, end: 20130925
  2. CORTICOSTEROIDS [Concomitant]
     Dosage: UNK
     Route: 065
  3. ANTIHYPERTENSIVES [Concomitant]
     Dosage: UNK
     Route: 065
  4. DIURETICS [Concomitant]
     Dosage: UNK
     Route: 065
  5. PSYCHOLEPTICS [Concomitant]
     Dosage: UNK
     Route: 065
  6. VITAMIN D                          /00318501/ [Concomitant]
     Dosage: UNK
     Route: 065
  7. MICAMLO [Concomitant]
     Indication: LUPUS NEPHRITIS
     Dosage: QD
     Route: 048
     Dates: start: 20130829
  8. LIPITOR [Concomitant]
     Indication: HYPERLIPIDAEMIA
     Dosage: 10 MG, QD
     Route: 048
  9. ONEALFA [Concomitant]
     Indication: OSTEOPOROSIS
     Dosage: QD
     Route: 048
  10. ULCERLMIN [Concomitant]
     Indication: GASTROOESOPHAGEAL REFLUX DISEASE
     Dosage: TID
     Route: 048
  11. MAGLAX [Concomitant]
     Indication: CONSTIPATION
     Dosage: TID
     Route: 048
  12. PANTOSIN [Concomitant]
     Indication: CONSTIPATION
     Dosage: TID
     Route: 048
     Dates: start: 20130912
  13. RINDERON                           /00008501/ [Concomitant]
     Indication: SYSTEMIC LUPUS ERYTHEMATOSUS
     Dosage: QD
     Route: 048
  14. LYRICA [Concomitant]
     Indication: SYSTEMIC LUPUS ERYTHEMATOSUS
     Dosage: QD
     Route: 048
     Dates: start: 20130823
  15. PARIET [Concomitant]
     Indication: GASTROOESOPHAGEAL REFLUX DISEASE
     Dosage: BID
     Route: 048
  16. ALDACTONE                          /00006201/ [Concomitant]
     Indication: PERICARDITIS LUPUS
     Dosage: QD
     Route: 048
  17. LASIX                              /00032601/ [Concomitant]
     Indication: PERICARDITIS LUPUS
     Dosage: QD
     Route: 048
  18. THYRADIN-S [Concomitant]
     Indication: SYSTEMIC LUPUS ERYTHEMATOSUS
     Dosage: QD
     Route: 048
  19. ATARAX-P                           /00058402/ [Concomitant]
     Indication: SYSTEMIC LUPUS ERYTHEMATOSUS
     Dosage: QD
     Route: 048
  20. CONTOMIN [Concomitant]
     Indication: SYSTEMIC LUPUS ERYTHEMATOSUS
     Dosage: QD
     Route: 048

REACTIONS (1)
  - Pancytopenia [Recovered/Resolved]
